FAERS Safety Report 8028586-9 (Version None)
Quarter: 2012Q1

REPORT INFORMATION
  Report Type: 
  Country: None (occurrence: None)
  Receive Date: 20120104
  Receipt Date: 20111226
  Transmission Date: 20120608
  Serious: Yes (Life-Threatening)
  Sender: FDA-Public Use
  Company Number: 2011SP059868

PATIENT
  Age: 64 Year
  Sex: Male

DRUGS (3)
  1. MIRTAZAPINE [Suspect]
     Indication: DEPRESSION
     Dosage: 30 MG;QD;PO
     Route: 048
     Dates: start: 20111121, end: 20111226
  2. DULOXETINE HYDROCHLORIDE [Concomitant]
  3. BROTIZOLAM [Concomitant]

REACTIONS (2)
  - SELF INJURIOUS BEHAVIOUR [None]
  - ANXIETY [None]
